FAERS Safety Report 4714819-0 (Version None)
Quarter: 2005Q3

REPORT INFORMATION
  Report Type: 
  Country: None (occurrence: None)
  Receive Date: 20050714
  Receipt Date: 20050714
  Transmission Date: 20060218
  Serious: Yes (Other)
  Sender: FDA-Public Use
  Company Number: None

PATIENT
  Sex: Female
  Weight: 70.7 kg

DRUGS (3)
  1. CYCLOPHOSPHAMIDE [Suspect]
     Indication: BREAST CANCER
     Dosage: 4 VS 6 CYCLES
     Dates: start: 20050411, end: 20050620
  2. DOXORUBICIN (CA) (4VS 6 CYCLES) [Suspect]
     Dates: start: 20050411, end: 20050620
  3. PACLITAXEL [Suspect]
     Dosage: SEE IMAGE

REACTIONS (4)
  - DELIRIUM [None]
  - MENTAL STATUS CHANGES [None]
  - URINARY INCONTINENCE [None]
  - URINARY TRACT INFECTION [None]
